FAERS Safety Report 21666804 (Version 2)
Quarter: 2022Q4

REPORT INFORMATION
  Report Type: Report from Study
  Country: US (occurrence: US)
  Receive Date: 20221201
  Receipt Date: 20221205
  Transmission Date: 20230113
  Serious: Yes (Hospitalization)
  Sender: FDA-Public Use
  Company Number: US-AMGEN-USASL2022206422

PATIENT
  Age: 52 Year
  Sex: Male

DRUGS (1)
  1. ENBREL [Suspect]
     Active Substance: ETANERCEPT
     Indication: Ankylosing spondylitis
     Dosage: 50 MILLIGRAM EVERY COUPLE WEEKS
     Route: 065
     Dates: start: 2012

REACTIONS (8)
  - Adverse reaction [Unknown]
  - Dizziness [Unknown]
  - Pain [Unknown]
  - Injection site pain [Unknown]
  - Injection site warmth [Unknown]
  - Injection site paraesthesia [Unknown]
  - Paraesthesia [Unknown]
  - Accidental exposure to product [Unknown]
